FAERS Safety Report 12675879 (Version 2)
Quarter: 2016Q3

REPORT INFORMATION
  Report Type: Spontaneous
  Country: US (occurrence: US)
  Receive Date: 20160823
  Receipt Date: 20160831
  Transmission Date: 20161109
  Serious: Yes (Disabling, Other)
  Sender: FDA-Public Use
  Company Number: US-ROCHE-1816444

PATIENT
  Sex: Female
  Weight: 70.82 kg

DRUGS (16)
  1. METOLAZONE. [Concomitant]
     Active Substance: METOLAZONE
     Route: 048
     Dates: start: 20160309
  2. ATIVAN [Concomitant]
     Active Substance: LORAZEPAM
     Dosage: AS DIRECTED
     Route: 048
     Dates: start: 20151110
  3. EYE PROMISE RESTORE [Concomitant]
     Route: 065
     Dates: start: 20150101
  4. LOSARTAN POTASSIUM. [Concomitant]
     Active Substance: LOSARTAN POTASSIUM
     Route: 048
     Dates: start: 20100101
  5. TRIAMTERENE. [Concomitant]
     Active Substance: TRIAMTERENE
     Route: 048
     Dates: start: 20150101
  6. BUMETANIDE. [Concomitant]
     Active Substance: BUMETANIDE
     Dosage: WATER PILL
     Route: 048
     Dates: start: 20160719
  7. FUROSEMIDE. [Concomitant]
     Active Substance: FUROSEMIDE
     Route: 048
     Dates: start: 20160225
  8. ATENOLOL. [Concomitant]
     Active Substance: ATENOLOL
     Route: 048
     Dates: start: 20100101
  9. LEVAQUIN [Concomitant]
     Active Substance: LEVOFLOXACIN
     Route: 048
     Dates: start: 20160330
  10. ALECENSA [Suspect]
     Active Substance: ALECTINIB HYDROCHLORIDE
     Indication: NON-SMALL CELL LUNG CANCER
     Dosage: 4 CAPSULES TWICE A DAY
     Route: 048
     Dates: start: 20160706, end: 20160819
  11. BUMEX [Concomitant]
     Active Substance: BUMETANIDE
     Route: 048
     Dates: start: 20160427
  12. ELIQUIS [Concomitant]
     Active Substance: APIXABAN
     Route: 048
     Dates: start: 20150101
  13. LEVOTHYROXINE SODIUM. [Concomitant]
     Active Substance: LEVOTHYROXINE SODIUM
     Route: 048
     Dates: start: 20100101
  14. SILVADENE [Concomitant]
     Active Substance: SILVER SULFADIAZINE
     Route: 065
     Dates: start: 20160330
  15. BUMETANIDE. [Concomitant]
     Active Substance: BUMETANIDE
     Dosage: WATER PILL
     Route: 048
     Dates: start: 20160607
  16. LOVASTATIN. [Concomitant]
     Active Substance: LOVASTATIN
     Route: 048
     Dates: start: 20150101

REACTIONS (5)
  - Oedema peripheral [Unknown]
  - Middle ear effusion [Unknown]
  - Dyspnoea [Unknown]
  - Pulmonary oedema [Unknown]
  - Wheezing [Unknown]
